FAERS Safety Report 15742236 (Version 1)
Quarter: 2018Q4

REPORT INFORMATION
  Report Type: Report from Study
  Country: EG (occurrence: EG)
  Receive Date: 20181219
  Receipt Date: 20181219
  Transmission Date: 20190205
  Serious: Yes (Death, Hospitalization)
  Sender: FDA-Public Use
  Company Number: EG-SA-2018SA160393

PATIENT
  Age: 64 Year
  Sex: Male

DRUGS (1)
  1. INSULIN GLARGINE [Suspect]
     Active Substance: INSULIN GLARGINE
     Indication: TYPE 2 DIABETES MELLITUS
     Dosage: UNK UNK, QD
     Route: 058
     Dates: start: 20170913, end: 20180610

REACTIONS (4)
  - Sepsis [Fatal]
  - Hypoglycaemia [Unknown]
  - Renal failure [Fatal]
  - Hypotension [Unknown]

NARRATIVE: CASE EVENT DATE: 20180607
